FAERS Safety Report 4939724-6 (Version None)
Quarter: 2006Q1

REPORT INFORMATION
  Report Type: 
  Country: None (occurrence: None)
  Receive Date: 20060307
  Receipt Date: 20060222
  Transmission Date: 20060701
  Serious: Yes (Other)
  Sender: FDA-Public Use
  Company Number: 2006027738

PATIENT
  Age: 60 Year
  Sex: Female

DRUGS (1)
  1. GENOTROPIN [Suspect]
     Indication: OFF LABEL USE
     Dosage: 0.3 MG (5.3 MG, DAILY)
     Dates: start: 20050501

REACTIONS (2)
  - EYE HAEMORRHAGE [None]
  - EYE PAIN [None]
